FAERS Safety Report 9251506 (Version 2)
Quarter: 2014Q1

REPORT INFORMATION
  Report Type: Spontaneous
  Country: US (occurrence: US)
  Receive Date: 20130424
  Receipt Date: 20140128
  Transmission Date: 20141002
  Serious: No
  Sender: FDA-Public Use
  Company Number: US-ASTRAZENECA-2013SE27375

PATIENT
  Age: 41 Year
  Sex: Female
  Weight: 59 kg

DRUGS (22)
  1. NEXIUM [Suspect]
     Indication: GASTRIC DISORDER
     Route: 048
     Dates: start: 200710, end: 201110
  2. NEXIUM [Suspect]
     Indication: GASTROOESOPHAGEAL REFLUX DISEASE
     Route: 048
     Dates: start: 200710, end: 201110
  3. NEXIUM [Suspect]
     Indication: GASTRIC DISORDER
     Route: 048
     Dates: start: 20071010
  4. NEXIUM [Suspect]
     Indication: GASTROOESOPHAGEAL REFLUX DISEASE
     Route: 048
     Dates: start: 20071010
  5. PROTONIX [Concomitant]
  6. ONETRAZOLE [Concomitant]
  7. TUMS [Concomitant]
     Dosage: OTC, AS NEEDED
  8. ROLAIDS [Concomitant]
     Dosage: OTC, AS NEEDED
  9. PEPTO-BISMOL [Concomitant]
     Dosage: OTC, AS NEEDED
  10. MYLANTA [Concomitant]
     Dosage: OTC, AS NEEDED
  11. BONIVA [Concomitant]
     Dosage: 150 MG ONCE MONTHLY
     Route: 048
     Dates: start: 20071010
  12. FETANOL [Concomitant]
  13. OXYCODONE [Concomitant]
  14. TOPOMAX [Concomitant]
  15. LISODERM [Concomitant]
  16. ENULOSE [Concomitant]
  17. NEURONTIN [Concomitant]
  18. VALIUM [Concomitant]
  19. RELAFEN [Concomitant]
  20. BACLOFEN [Concomitant]
     Dosage: TAKE ONE OR TWO TABLETS EVERY SIX HOURS
     Route: 048
     Dates: start: 20110525
  21. TRAZADONE [Concomitant]
     Dosage: TAKE ONE OR TWO TABLETS AT BEDTIME
     Route: 048
     Dates: start: 20101004
  22. TOPIRAMATE [Concomitant]
     Route: 048
     Dates: start: 20120128

REACTIONS (5)
  - Osteoporosis [Unknown]
  - Bone disorder [Unknown]
  - Foot fracture [Unknown]
  - Osteopenia [Unknown]
  - Limb injury [Unknown]
